FAERS Safety Report 12835850 (Version 7)
Quarter: 2018Q2

REPORT INFORMATION
  Report Type: Report from Study
  Country: None (occurrence: NL)
  Receive Date: 20161011
  Receipt Date: 20180622
  Transmission Date: 20180711
  Serious: Yes (Other)
  Sender: FDA-Public Use
  Company Number: NL-ABBVIE-16K-114-1718015-00

PATIENT
  Age: 76 Year
  Sex: Male

DRUGS (8)
  1. MICROLAX (SODIUM CITRATE\SODIUM LAURYL SULFOACETATE\SORBITOL) [Suspect]
     Active Substance: SODIUM CITRATE\SODIUM LAURYL SULFOACETATE\SORBITOL
     Indication: CONSTIPATION
     Route: 065
  2. DUODOPA [Suspect]
     Active Substance: CARBIDOPA\LEVODOPA
     Indication: PARKINSON^S DISEASE
     Dosage: MD: 3.0, CD: 2.0, ED: 3.0, ND: 2.0-5.0
     Route: 050
     Dates: start: 20130110
  3. DUODOPA [Suspect]
     Active Substance: CARBIDOPA\LEVODOPA
     Dosage: CD: 1.6 ML/HR AND SOME DAYS 1.7 ML/HR
     Route: 050
  4. DUODOPA [Suspect]
     Active Substance: CARBIDOPA\LEVODOPA
     Dosage: CONTINUOUS DOSE INCREASED WITH 0.1 ML
     Route: 050
     Dates: start: 201703
  5. CLOZAPINE. [Concomitant]
     Active Substance: CLOZAPINE
     Indication: PRODUCT USED FOR UNKNOWN INDICATION
  6. AZILECT [Concomitant]
     Active Substance: RASAGILINE MESYLATE
     Indication: PRODUCT USED FOR UNKNOWN INDICATION
  7. DUODOPA [Suspect]
     Active Substance: CARBIDOPA\LEVODOPA
     Dosage: MORNING DOSE: 3ML, CONTINUOUS DOSE: 1.7ML, EXTRA DOSE: 0ML
     Route: 050
  8. DOMPERIDONE [Concomitant]
     Active Substance: DOMPERIDONE
     Indication: ORTHOSTATIC HYPOTENSION

REACTIONS (32)
  - Stoma site haemorrhage [Recovered/Resolved]
  - Wound infection [Unknown]
  - Feeling abnormal [Not Recovered/Not Resolved]
  - Middle insomnia [Not Recovered/Not Resolved]
  - Constipation [Not Recovered/Not Resolved]
  - Abnormal dreams [Not Recovered/Not Resolved]
  - Stoma site erythema [Not Recovered/Not Resolved]
  - Benign neoplasm [Unknown]
  - Musculoskeletal stiffness [Recovering/Resolving]
  - Speech disorder [Not Recovered/Not Resolved]
  - Mobility decreased [Recovering/Resolving]
  - Fall [Not Recovered/Not Resolved]
  - Fibroma [Not Recovered/Not Resolved]
  - Overdose [Unknown]
  - Stoma site discharge [Not Recovered/Not Resolved]
  - Cognitive disorder [Not Recovered/Not Resolved]
  - Restlessness [Unknown]
  - Pneumonia [Recovering/Resolving]
  - Memory impairment [Not Recovered/Not Resolved]
  - Intentional dose omission [Unknown]
  - Stoma site irritation [Recovered/Resolved]
  - Stoma site inflammation [Recovered/Resolved]
  - Stoma site reaction [Not Recovered/Not Resolved]
  - Incontinence [Not Recovered/Not Resolved]
  - Communication disorder [Not Recovered/Not Resolved]
  - Gait disturbance [Unknown]
  - Dementia [Not Recovered/Not Resolved]
  - Somnolence [Not Recovered/Not Resolved]
  - Coordination abnormal [Unknown]
  - Posture abnormal [Unknown]
  - Wrong technique in device usage process [Unknown]
  - Freezing phenomenon [Recovered/Resolved]

NARRATIVE: CASE EVENT DATE: 201710
